FAERS Safety Report 8563750-1 (Version None)
Quarter: 2012Q3

REPORT INFORMATION
  Report Type: 
  Country: None (occurrence: None)
  Receive Date: 20120803
  Receipt Date: 20120726
  Transmission Date: 20120928
  Serious: Yes (Death, Hospitalization)
  Sender: FDA-Public Use
  Company Number: US-MSD-1207USA011405

PATIENT

DRUGS (10)
  1. ZETIA [Suspect]
     Indication: HYPERLIPIDAEMIA
     Dosage: 10 MG, QD
     Route: 048
     Dates: end: 20111105
  2. COREG [Concomitant]
     Indication: HYPERTENSION
     Dosage: UNK
     Dates: end: 20111010
  3. CRIZOTINIB [Suspect]
     Indication: NON-SMALL CELL LUNG CANCER
     Dosage: 250 MG, BID
     Route: 048
     Dates: start: 20110603, end: 20111024
  4. BENZONATATE [Concomitant]
     Indication: COUGH
     Dosage: UNK
     Dates: end: 20111105
  5. LASIX [Concomitant]
     Indication: HYPERTENSION
     Dosage: UNK
     Dates: end: 20111105
  6. ASPIRIN [Concomitant]
     Indication: CORONARY ARTERY DISEASE
     Dosage: UNK
     Dates: end: 20110511
  7. POTASSIUM CHLORIDE [Concomitant]
     Indication: MEDICAL DIET
     Dosage: 20 MEQ, QD
     Dates: end: 20111105
  8. LEVOTHYROXINE SODIUM [Concomitant]
     Indication: HYPOTHYROIDISM
     Dosage: UNK UNK, QD
     Route: 048
     Dates: end: 20111105
  9. FLUZONE (INFLUENZA VIRUS SPLIT VIRION 3V VACCINE INACTIVATED) [Concomitant]
     Indication: PROPHYLAXIS
     Dates: start: 20110510, end: 20110510
  10. ZOCOR [Suspect]
     Indication: HYPERLIPIDAEMIA
     Dosage: 40 MG, QD
     Route: 048
     Dates: end: 20111105

REACTIONS (4)
  - DEATH [None]
  - ORTHOSTATIC HYPERTENSION [None]
  - ILEUS [None]
  - CONSTIPATION [None]
